FAERS Safety Report 5382015-2 (Version None)
Quarter: 2007Q3

REPORT INFORMATION
  Report Type: 
  Country: None (occurrence: None)
  Receive Date: 20070709
  Receipt Date: 20070702
  Transmission Date: 20080115
  Serious: Yes (Disabling, Other)
  Sender: FDA-Public Use
  Company Number: D0053138A

PATIENT
  Age: 72 Year
  Sex: Female
  Weight: 70 kg

DRUGS (6)
  1. AVANDIA [Suspect]
     Dosage: 4MG UNKNOWN
     Route: 048
     Dates: start: 20031001
  2. AVANDAMET [Suspect]
     Route: 048
     Dates: end: 20070301
  3. NOVONORM [Concomitant]
     Dosage: 1MG THREE TIMES PER DAY
     Route: 048
     Dates: start: 20030101, end: 20070101
  4. CORINFAR [Concomitant]
     Indication: HYPERTENSION
     Dosage: 30MG PER DAY
     Route: 048
     Dates: start: 20030101, end: 20070101
  5. MOLSIHEXAL RETARD [Concomitant]
     Dosage: 8MG PER DAY
     Route: 048
     Dates: start: 20030101, end: 20070101
  6. ISDN 40 RETARD [Concomitant]
     Dosage: 40MG PER DAY
     Route: 048
     Dates: start: 20030101, end: 20070101

REACTIONS (3)
  - BACK PAIN [None]
  - HYPOKINESIA [None]
  - SPINAL COMPRESSION FRACTURE [None]
